FAERS Safety Report 6639176-4 (Version None)
Quarter: 2010Q1

REPORT INFORMATION
  Report Type: 
  Country: None (occurrence: None)
  Receive Date: 20100317
  Receipt Date: 20100316
  Transmission Date: 20100710
  Serious: Yes (Other)
  Sender: FDA-Public Use
  Company Number: ES-MERCK-1003ESP00035

PATIENT
  Age: 38 Year
  Sex: Female

DRUGS (1)
  1. SINGULAIR [Suspect]
     Indication: ASTHMA
     Route: 048
     Dates: start: 20071016, end: 20071022

REACTIONS (3)
  - MOOD ALTERED [None]
  - MYALGIA [None]
  - PARAESTHESIA [None]
